FAERS Safety Report 21156951 (Version 3)
Quarter: 2022Q3

REPORT INFORMATION
  Report Type: Spontaneous
  Country: FR (occurrence: FR)
  Receive Date: 20220801
  Receipt Date: 20220902
  Transmission Date: 20221027
  Serious: Yes (Hospitalization, Other)
  Sender: FDA-Public Use
  Company Number: FR-OTSUKA-2022_038379

PATIENT
  Sex: Female

DRUGS (8)
  1. TOLVAPTAN [Suspect]
     Active Substance: TOLVAPTAN
     Indication: Product used for unknown indication
     Dosage: 90 MG, QD
     Route: 065
     Dates: start: 2015, end: 202108
  2. TOLVAPTAN [Suspect]
     Active Substance: TOLVAPTAN
     Dosage: 30 MG, QD
     Route: 065
     Dates: start: 2015, end: 202108
  3. AMLODIPINE [Suspect]
     Active Substance: AMLODIPINE BESYLATE
     Indication: Product used for unknown indication
     Dosage: 5 MG
     Route: 065
     Dates: start: 2018
  4. AMLODIPINE [Suspect]
     Active Substance: AMLODIPINE BESYLATE
     Dosage: 10 MG
     Route: 065
     Dates: start: 2021
  5. LANREOTIDE [Concomitant]
     Active Substance: LANREOTIDE
     Indication: Product used for unknown indication
     Dosage: 120 MG
     Route: 065
     Dates: start: 2012, end: 202002
  6. LANREOTIDE [Concomitant]
     Active Substance: LANREOTIDE
     Dosage: 120 MG LP
     Route: 065
     Dates: start: 2012, end: 202108
  7. ALGINATE DE SODIUM/BICARBONATE DE SODIUM ZENTIVA [Concomitant]
     Indication: Product used for unknown indication
     Dosage: UNK
     Route: 065
  8. ACETAMINOPHEN [Concomitant]
     Active Substance: ACETAMINOPHEN
     Indication: Product used for unknown indication
     Dosage: UNK
     Route: 065

REACTIONS (15)
  - Impaired gastric emptying [Unknown]
  - Liver disorder [Recovered/Resolved]
  - Fatigue [Recovering/Resolving]
  - Abdominal pain [Recovered/Resolved]
  - Palatal disorder [Unknown]
  - Hyperhidrosis [Unknown]
  - Acne [Recovered/Resolved]
  - Gastrointestinal pain [Unknown]
  - Nausea [Unknown]
  - Chest pain [Unknown]
  - Muscle spasms [Unknown]
  - Constipation [Unknown]
  - Thirst [Recovering/Resolving]
  - Fall [Unknown]
  - Oedema [Unknown]

NARRATIVE: CASE EVENT DATE: 20180101
